FAERS Safety Report 7643634-3 (Version None)
Quarter: 2011Q3

REPORT INFORMATION
  Report Type: 
  Country: None (occurrence: None)
  Receive Date: 20110729
  Receipt Date: 20110723
  Transmission Date: 20111222
  Serious: Yes (Death, Hospitalization, Other)
  Sender: FDA-Public Use
  Company Number: PHHY2011CN67220

PATIENT
  Age: 48 Year
  Sex: Male

DRUGS (1)
  1. SEBIVO [Suspect]
     Indication: HEPATITIS B
     Dosage: 600 MG, QD
     Dates: start: 20080101

REACTIONS (26)
  - RHABDOMYOLYSIS [None]
  - OEDEMA PERIPHERAL [None]
  - BLOOD UREA INCREASED [None]
  - ASPARTATE AMINOTRANSFERASE INCREASED [None]
  - PAIN IN EXTREMITY [None]
  - BLOOD LACTATE DEHYDROGENASE INCREASED [None]
  - FIBRINOLYSIS [None]
  - MYALGIA [None]
  - ASTHENIA [None]
  - BLOOD BILIRUBIN INCREASED [None]
  - BLOOD CREATINE PHOSPHOKINASE INCREASED [None]
  - DECREASED APPETITE [None]
  - RENAL FAILURE ACUTE [None]
  - BLOOD CREATININE INCREASED [None]
  - BODY TEMPERATURE INCREASED [None]
  - TROPONIN I INCREASED [None]
  - ABDOMINAL PAIN [None]
  - ALANINE AMINOTRANSFERASE INCREASED [None]
  - MYOGLOBIN BLOOD INCREASED [None]
  - PROTHROMBIN TIME PROLONGED [None]
  - BLOOD CREATINE PHOSPHOKINASE MB INCREASED [None]
  - METABOLIC ACIDOSIS [None]
  - DYSSTASIA [None]
  - HEPATIC CIRRHOSIS [None]
  - ASCITES [None]
  - ABDOMINAL DISTENSION [None]
